FAERS Safety Report 4402133-2 (Version None)
Quarter: 2004Q3

REPORT INFORMATION
  Report Type: 
  Country: None (occurrence: None)
  Receive Date: 20040715
  Receipt Date: 20040629
  Transmission Date: 20050211
  Serious: Yes (Life-Threatening)
  Sender: FDA-Public Use
  Company Number: 28770

PATIENT
  Age: 80 Year
  Sex: Male

DRUGS (1)
  1. BETAXOLOL HCL [Suspect]
     Indication: GLAUCOMA
     Dosage: OPHT
     Dates: start: 19880101

REACTIONS (1)
  - ARRHYTHMIA [None]
